FAERS Safety Report 4836851-9 (Version None)
Quarter: 2005Q4

REPORT INFORMATION
  Report Type: 
  Country: None (occurrence: None)
  Receive Date: 20051123
  Receipt Date: 20051004
  Transmission Date: 20060501
  Serious: Yes (Other)
  Sender: FDA-Public Use
  Company Number: US-MERCK-0510USA03073

PATIENT
  Age: 55 Year
  Sex: Male
  Weight: 105 kg

DRUGS (11)
  1. VIOXX [Suspect]
     Indication: ARTHRITIS
     Route: 048
     Dates: start: 20011127, end: 20011201
  2. VIOXX [Suspect]
     Route: 048
     Dates: start: 20011201, end: 20041022
  3. PROTONIX [Concomitant]
     Route: 065
  4. PRAVACHOL [Concomitant]
     Route: 065
  5. NORVASC [Concomitant]
     Route: 065
  6. ISOSORBIDE [Concomitant]
     Route: 065
  7. FLONASE [Concomitant]
     Route: 065
  8. WARFARIN [Concomitant]
     Route: 065
  9. WELLBUTRIN [Concomitant]
     Route: 065
  10. FUROSEMIDE [Concomitant]
     Route: 065
  11. CELEBREX [Concomitant]
     Route: 065

REACTIONS (17)
  - ANGINA PECTORIS [None]
  - ASTHENIA [None]
  - CARDIAC DISORDER [None]
  - CARDIAC FAILURE CONGESTIVE [None]
  - CARDIAC MURMUR [None]
  - CEREBROVASCULAR ACCIDENT [None]
  - DEPRESSION [None]
  - EYE INJURY [None]
  - GOUT [None]
  - HYPERTENSIVE HEART DISEASE [None]
  - HYPOAESTHESIA [None]
  - NERVOUS SYSTEM DISORDER [None]
  - NERVOUSNESS [None]
  - OCULAR HYPERAEMIA [None]
  - OEDEMA PERIPHERAL [None]
  - ROAD TRAFFIC ACCIDENT [None]
  - TRANSIENT ISCHAEMIC ATTACK [None]
